FAERS Safety Report 9341508 (Version 1)
Quarter: 2013Q2

REPORT INFORMATION
  Report Type: Spontaneous
  Country: US (occurrence: US)
  Receive Date: 20130611
  Receipt Date: 20130611
  Transmission Date: 20140414
  Serious: Yes (Other)
  Sender: FDA-Public Use
  Company Number: US-JNJFOC-20130601504

PATIENT
  Sex: 0

DRUGS (1)
  1. DOXORUBICIN HYDROCHLORIDE [Suspect]
     Indication: HEPATOCELLULAR CARCINOMA
     Dosage: RANGE 25-75 MG
     Route: 013

REACTIONS (3)
  - Aspartate aminotransferase increased [Unknown]
  - Off label use [Unknown]
  - Incorrect route of drug administration [Unknown]
